FAERS Safety Report 4850869-1 (Version None)
Quarter: 2005Q4

REPORT INFORMATION
  Report Type: 
  Country: None (occurrence: None)
  Receive Date: 20051212
  Receipt Date: 20051130
  Transmission Date: 20060501
  Serious: Yes (Other)
  Sender: FDA-Public Use
  Company Number: JP-SANOFI-SYNTHELABO-A01200508482

PATIENT
  Age: 13 Year
  Sex: Female

DRUGS (2)
  1. MYSLEE [Suspect]
     Indication: INSOMNIA
     Dosage: 10 MG
     Route: 048
     Dates: start: 20051121, end: 20051121
  2. ZYPREXA [Concomitant]
     Dosage: 1.25 MG
     Route: 048
     Dates: start: 20051029

REACTIONS (3)
  - DELIRIUM [None]
  - NAUSEA [None]
  - VOMITING [None]
